FAERS Safety Report 19453886 (Version 3)
Quarter: 2023Q1

REPORT INFORMATION
  Report Type: Report from Study
  Country: US (occurrence: US)
  Receive Date: 20210623
  Receipt Date: 20230210
  Transmission Date: 20230418
  Serious: No
  Sender: FDA-Public Use
  Company Number: US-GENERICUS, INC.-2021GNR00012

PATIENT
  Age: 21 Year
  Sex: Male
  Weight: 78.458 kg

DRUGS (1)
  1. TOBRAMYCIN [Suspect]
     Active Substance: TOBRAMYCIN
     Indication: Pneumonia aspiration
     Dosage: 5 ML VIAL VIA NEBULIZER, 2X/DAY (EVERY 12 HOURS) FOR 14 DAYS ON THEN 14 DAYS OFF TO CONTINUE FOR 12
     Dates: start: 20210512

REACTIONS (1)
  - Off label use [Not Recovered/Not Resolved]

NARRATIVE: CASE EVENT DATE: 20210512
